FAERS Safety Report 8885903 (Version 1)
Quarter: 2012Q4

REPORT INFORMATION
  Report Type: Report from Study
  Country: DE (occurrence: DE)
  Receive Date: 20121105
  Receipt Date: 20121105
  Transmission Date: 20130627
  Serious: Yes (Hospitalization, Other)
  Sender: FDA-Public Use
  Company Number: PHHO2010DE15135

PATIENT
  Age: 73 Year
  Sex: Male

DRUGS (1)
  1. ALISKIREN [Suspect]
     Indication: CARDIAC FAILURE ACUTE
     Route: 048
     Dates: start: 20100901, end: 20101006

REACTIONS (5)
  - Cardiac failure acute [Recovered/Resolved]
  - Disease progression [Recovered/Resolved]
  - Drug ineffective [Recovered/Resolved]
  - Renal cancer [Not Recovered/Not Resolved]
  - Weight decreased [Unknown]
